FAERS Safety Report 8026271-0 (Version None)
Quarter: 2012Q1

REPORT INFORMATION
  Report Type: 
  Country: None (occurrence: None)
  Receive Date: 20120105
  Receipt Date: 20110316
  Transmission Date: 20120608
  Serious: No
  Sender: FDA-Public Use
  Company Number: US-ABBOTT-11P-163-0712623-00

PATIENT
  Sex: Female
  Weight: 84.898 kg

DRUGS (7)
  1. SYNTHROID [Suspect]
     Indication: HYPOTHYROIDISM
     Dates: start: 20110221
  2. SYNTHROID [Suspect]
     Dates: start: 20110301, end: 20110303
  3. TIROSINT [Suspect]
     Indication: HYPOTHYROIDISM
     Route: 048
     Dates: start: 20110222, end: 20110228
  4. SYNTHROID [Suspect]
  5. ALLEGRA [Concomitant]
     Indication: PRODUCT USED FOR UNKNOWN INDICATION
  6. TIROSINT [Suspect]
     Dates: start: 20110303, end: 20110307
  7. CRESTOR [Concomitant]
     Indication: PRODUCT USED FOR UNKNOWN INDICATION

REACTIONS (4)
  - FLUSHING [None]
  - PARAESTHESIA [None]
  - ERYTHEMA [None]
  - COELIAC DISEASE [None]
